FAERS Safety Report 6511021-7 (Version None)
Quarter: 2009Q4

REPORT INFORMATION
  Report Type: 
  Country: None (occurrence: None)
  Receive Date: 20091222
  Receipt Date: 20090216
  Transmission Date: 20100525
  Serious: No
  Sender: FDA-Public Use
  Company Number: US-ASTRAZENECA-2009UW04436

PATIENT
  Age: 69 Year
  Sex: Female
  Weight: 68 kg

DRUGS (7)
  1. CRESTOR [Suspect]
     Route: 048
  2. COREG [Concomitant]
  3. ZETIA [Concomitant]
  4. DIOVAN [Concomitant]
  5. OMEPRAZOLE [Concomitant]
  6. ALLEGRA [Concomitant]
  7. CQ 10 [Concomitant]

REACTIONS (1)
  - FLUSHING [None]
